FAERS Safety Report 9064320 (Version 2)
Quarter: 2013Q3

REPORT INFORMATION
  Report Type: Spontaneous
  Country: US (occurrence: US)
  Receive Date: 20130213
  Receipt Date: 20130710
  Transmission Date: 20140515
  Serious: No
  Sender: FDA-Public Use
  Company Number: US-B.I. PHARMACEUTICALS,INC./RIDGEFIELD-2013-BI-03890BP

PATIENT
  Age: 57 Year
  Sex: Male

DRUGS (8)
  1. COMBIVENT [Suspect]
     Indication: BULLOUS LUNG DISEASE
     Dosage: 20 MCG / 100MCG; 80 MCG / 400 MCG QID
     Route: 055
     Dates: start: 20130204
  2. COMBIVENT [Suspect]
     Indication: DYSPNOEA
     Dosage: STRENGTH: 20 MCG/100 MCG, DOSE:80 MCG/400 MCG
     Route: 055
     Dates: start: 20130627
  3. COMBIVENT [Suspect]
     Indication: BULLOUS LUNG DISEASE
     Route: 055
     Dates: end: 20130103
  4. PROVENTIL [Concomitant]
     Indication: BULLOUS LUNG DISEASE
     Route: 055
  5. LISINOPRIL [Concomitant]
     Indication: HYPERTENSION
     Dosage: 40 MG
     Route: 048
     Dates: start: 2003
  6. SIMVASTATIN [Concomitant]
     Indication: BLOOD CHOLESTEROL INCREASED
     Dosage: 20 MG
     Route: 048
     Dates: start: 2009
  7. TAMSULOSIN [Concomitant]
     Indication: PROSTATOMEGALY
     Dosage: 0.4 MG
     Route: 048
     Dates: start: 2010
  8. METFORMIN [Concomitant]
     Indication: GLUCOSE TOLERANCE IMPAIRED
     Dosage: 2000 MG
     Route: 048
     Dates: start: 2011

REACTIONS (7)
  - Oropharyngeal pain [Not Recovered/Not Resolved]
  - Cough [Not Recovered/Not Resolved]
  - Palpitations [Recovered/Resolved]
  - Chest discomfort [Not Recovered/Not Resolved]
  - Pain [Not Recovered/Not Resolved]
  - Off label use [Not Recovered/Not Resolved]
  - Cough [Not Recovered/Not Resolved]
